FAERS Safety Report 8464148 (Version 2)
Quarter: 2012Q4

REPORT INFORMATION
  Report Type: Report from Study
  Country: US (occurrence: US)
  Receive Date: 20120316
  Receipt Date: 20121008
  Transmission Date: 20130627
  Serious: Yes (Other)
  Sender: FDA-Public Use
  Company Number: US-ABBOTT-12P-163-0913976-00

PATIENT
  Age: 42 None
  Sex: Female
  Weight: 45.4 kg

DRUGS (11)
  1. HUMIRA 40 MG/0.8 ML PEN [Suspect]
     Indication: CROHN^S DISEASE
     Route: 058
     Dates: start: 2009
  2. ABILIFY [Concomitant]
     Indication: DEPRESSION
  3. HYDROCODONE W/APAP [Concomitant]
     Indication: ABDOMINAL PAIN
  4. LEXAPRO [Concomitant]
     Indication: DEPRESSION
  5. PREDNISONE [Concomitant]
     Indication: CROHN^S DISEASE
  6. XANAX [Concomitant]
     Indication: ANXIETY
  7. LYRICA [Concomitant]
     Indication: PAIN
  8. B12 [Concomitant]
     Indication: VITAMIN SUPPLEMENTATION
  9. MARINOL [Concomitant]
     Indication: PRODUCT USED FOR UNKNOWN INDICATION
  10. MORPHINE [Concomitant]
     Indication: PRODUCT USED FOR UNKNOWN INDICATION
  11. NEXIUM [Concomitant]
     Indication: PRODUCT USED FOR UNKNOWN INDICATION

REACTIONS (1)
  - Tooth loss [Recovered/Resolved]
